FAERS Safety Report 17250622 (Version 1)
Quarter: 2020Q1

REPORT INFORMATION
  Report Type: Spontaneous
  Country: CN (occurrence: CN)
  Receive Date: 20200109
  Receipt Date: 20200109
  Transmission Date: 20200409
  Serious: Yes (Other)
  Sender: FDA-Public Use
  Company Number: CN-ALKEM LABORATORIES LIMITED-CN-ALKEM-2019-08998

PATIENT
  Age: 80 Year
  Sex: Female

DRUGS (2)
  1. ITRACONAZOLE. [Suspect]
     Active Substance: ITRACONAZOLE
     Indication: PHAEOHYPHOMYCOSIS
     Dosage: 200 MILLIGRAM, QD
     Route: 048
  2. TERBINAFINE HYDROCHLORIDE. [Suspect]
     Active Substance: TERBINAFINE HYDROCHLORIDE
     Indication: PHAEOHYPHOMYCOSIS
     Dosage: 250 MILLIGRAM, QD
     Route: 065

REACTIONS (1)
  - Therapy partial responder [Unknown]
